FAERS Safety Report 6662536-2 (Version None)
Quarter: 2010Q1

REPORT INFORMATION
  Report Type: 
  Country: None (occurrence: None)
  Receive Date: 20100329
  Receipt Date: 20100319
  Transmission Date: 20100710
  Serious: Yes (Disabling)
  Sender: FDA-Public Use
  Company Number: OSCN-NO-1003S-0080

PATIENT
  Age: 55 Year
  Sex: Male
  Weight: 120 kg

DRUGS (6)
  1. OMNISCAN [Suspect]
     Indication: DRUG USE FOR UNKNOWN INDICATION
     Dosage: NR, SINGLE DOSE, I.V.
     Route: 042
     Dates: start: 19910101, end: 19910101
  2. ENALAPRIL (RENITEC) [Concomitant]
  3. BENDROFLUMETHIAZIDE (CENTYL) [Concomitant]
  4. ENALAPRIL (CORODIL) [Concomitant]
  5. CHLOROTHIAZIDE (DIUREL) [Concomitant]
  6. TOLBUTAMIDE (TOLBUTAMID) [Concomitant]

REACTIONS (3)
  - FOOT DEFORMITY [None]
  - GLYCOSYLATED HAEMOGLOBIN INCREASED [None]
  - NEUROPATHIC ARTHROPATHY [None]
